FAERS Safety Report 8165645-4 (Version None)
Quarter: 2012Q1

REPORT INFORMATION
  Report Type: 
  Country: None (occurrence: None)
  Receive Date: 20120103
  Receipt Date: 20111028
  Transmission Date: 20120608
  Serious: No
  Sender: FDA-Public Use
  Company Number: AE-2011-002482

PATIENT
  Age: 63 Year
  Sex: Female
  Weight: 65.7716 kg

DRUGS (8)
  1. PEGASYS [Concomitant]
  2. CETAPHIL RESTORADERM (CETAPHIL) [Concomitant]
  3. SERTRALINE HYDROCHLORIDE [Concomitant]
  4. INCIVEK [Suspect]
     Dosage: 2250 MG (750 MG, 1 IN 8 HR), ORAL
     Route: 048
     Dates: start: 20111017
  5. RIBAPAK (RIBAVIRIN) [Concomitant]
  6. CLOBETASOL PROPIONATE [Concomitant]
  7. SUMATRIPTAN SUCCINATE (IMITREX) [Concomitant]
  8. HYDROXYZINE [Concomitant]

REACTIONS (2)
  - HEADACHE [None]
  - RASH PRURITIC [None]
